FAERS Safety Report 20364878 (Version 1)
Quarter: 2022Q1

REPORT INFORMATION
  Report Type: Spontaneous
  Country: CA (occurrence: CA)
  Receive Date: 20220122
  Receipt Date: 20220122
  Transmission Date: 20220423
  Serious: Yes (Hospitalization, Other)
  Sender: FDA-Public Use
  Company Number: CA-BRISTOL-MYERS SQUIBB COMPANY-BMS-2022-003840

PATIENT
  Age: 83 Year
  Sex: Male
  Weight: 66 kg

DRUGS (1)
  1. HYDREA [Suspect]
     Active Substance: HYDROXYUREA
     Indication: Polycythaemia vera
     Dosage: 500 MILLIGRAM, QD
     Route: 048

REACTIONS (9)
  - Hospitalisation [Recovered/Resolved]
  - Hypoxia [Recovered/Resolved]
  - Anosmia [Recovered/Resolved]
  - Cough [Recovered/Resolved]
  - Disturbance in attention [Recovered/Resolved]
  - Dyspnoea [Recovered/Resolved]
  - Headache [Recovered/Resolved]
  - Myalgia [Recovered/Resolved]
  - Pyrexia [Recovered/Resolved]
